FAERS Safety Report 11259443 (Version 2)
Quarter: 2015Q3

REPORT INFORMATION
  Report Type: Spontaneous
  Country: JP (occurrence: JP)
  Receive Date: 20150710
  Receipt Date: 20150722
  Transmission Date: 20151125
  Serious: Yes (Life-Threatening, Hospitalization)
  Sender: FDA-Public Use
  Company Number: JP-ASTRAZENECA-2015SE63079

PATIENT
  Age: 80 Year
  Sex: Male
  Weight: 56 kg

DRUGS (12)
  1. POSTERISAN [Concomitant]
     Active Substance: LIDOCAINE
     Dosage: DOSE UNKNOWN
     Route: 065
  2. CRESTOR [Suspect]
     Active Substance: ROSUVASTATIN CALCIUM
     Indication: HYPERCHOLESTEROLAEMIA
     Route: 048
     Dates: start: 2011, end: 201407
  3. ANTAGOSTIN [Concomitant]
     Dosage: DOSE UNKNOWN
     Route: 048
  4. URIEF [Concomitant]
     Active Substance: SILODOSIN
     Dosage: DOSE UNKNOWN
     Route: 065
  5. MANIDILOT [Concomitant]
     Route: 065
  6. CRESTOR [Suspect]
     Active Substance: ROSUVASTATIN CALCIUM
     Indication: HYPERCHOLESTEROLAEMIA
     Route: 048
     Dates: start: 201407, end: 201408
  7. ULGUT [Concomitant]
     Dosage: DOSE UNKNOWN
     Route: 048
  8. STROCAIN [Concomitant]
     Active Substance: OXETHAZAINE
     Dosage: DOSE UNKNOWN
     Route: 065
  9. BUTIKINON [Concomitant]
     Dosage: DOSE UNKNOWN
     Route: 065
  10. RABEPRAZOLE NA [Concomitant]
     Dosage: EVERY DAY
     Route: 065
  11. TRAMCET [Concomitant]
     Active Substance: ACETAMINOPHEN\TRAMADOL
     Indication: PAIN
     Dosage: DOSE UNKNOWN
     Route: 065
  12. SELAPINA [Concomitant]
     Dosage: DOSE UNKNOWN
     Route: 065

REACTIONS (1)
  - Immune-mediated necrotising myopathy [Recovered/Resolved with Sequelae]

NARRATIVE: CASE EVENT DATE: 201408
